FAERS Safety Report 6037879-6 (Version None)
Quarter: 2009Q1

REPORT INFORMATION
  Report Type: 
  Country: None (occurrence: None)
  Receive Date: 20090115
  Receipt Date: 20090111
  Transmission Date: 20090719
  Serious: Yes (Other)
  Sender: FDA-Public Use
  Company Number: SE-JNJFOC-20090102083

PATIENT
  Sex: Female

DRUGS (1)
  1. HALDOL [Suspect]
     Indication: HALLUCINATION
     Route: 048

REACTIONS (3)
  - DYSARTHRIA [None]
  - DYSPHONIA [None]
  - HYPOKINESIA [None]
